FAERS Safety Report 23255691 (Version 1)
Quarter: 2023Q4

REPORT INFORMATION
  Report Type: Spontaneous
  Country: CN (occurrence: CN)
  Receive Date: 20231204
  Receipt Date: 20231204
  Transmission Date: 20240110
  Serious: Yes (Other)
  Sender: FDA-Public Use
  Company Number: None

PATIENT
  Age: 49 Year
  Sex: Female
  Weight: 48 kg

DRUGS (2)
  1. CYCLOPHOSPHAMIDE [Suspect]
     Active Substance: CYCLOPHOSPHAMIDE
     Indication: Breast cancer female
     Dosage: 0.8 G, ONCE A DAY, DILUTED WITH 40 ML OF 0.9% SODIUM CHLORIDE, ONE-TIME ADMINISTRATION
     Route: 041
     Dates: start: 20231104, end: 20231104
  2. SODIUM CHLORIDE [Suspect]
     Active Substance: SODIUM CHLORIDE
     Indication: Medication dilution
     Dosage: (0.9%) 40 ML, ONCE A DAY, USED TO DILUTE 0.8 G OF CYCLOPHOSPHAMIDE, ONE-TIME ADMINISTRATION
     Route: 041
     Dates: start: 20231104, end: 20231104

REACTIONS (1)
  - Myelosuppression [Recovering/Resolving]

NARRATIVE: CASE EVENT DATE: 20231124
